FAERS Safety Report 10162642 (Version 1)
Quarter: 2014Q2

REPORT INFORMATION
  Report Type: Spontaneous
  Country: US (occurrence: US)
  Receive Date: 20140509
  Receipt Date: 20140509
  Transmission Date: 20141212
  Serious: No
  Sender: FDA-Public Use
  Company Number: US-PFIZER INC-2014127773

PATIENT
  Age: 65 Year
  Sex: Female
  Weight: 59.86 kg

DRUGS (4)
  1. CELEBREX [Suspect]
     Indication: ARTHRITIS
     Dosage: 100 MG, 1X/DAY
     Route: 048
     Dates: end: 20140420
  2. BIOTIN [Concomitant]
     Indication: HAIR DISORDER
     Dosage: UNK
  3. BIOTIN [Concomitant]
     Indication: NEUROPATHY PERIPHERAL
  4. CENTRUM SILVER [Concomitant]
     Dosage: UNK

REACTIONS (3)
  - Pain [Unknown]
  - Limb discomfort [Unknown]
  - Activities of daily living impaired [Unknown]
